FAERS Safety Report 5298903-1 (Version None)
Quarter: 2007Q2

REPORT INFORMATION
  Report Type: 
  Country: None (occurrence: None)
  Receive Date: 20070417
  Receipt Date: 20070405
  Transmission Date: 20071010
  Serious: Yes (Disabling)
  Sender: FDA-Public Use
  Company Number: PHRM2007FR01206

PATIENT
  Age: 56 Year
  Sex: Female

DRUGS (4)
  1. TAXOTERE [Suspect]
     Indication: BREAST CANCER METASTATIC
     Dosage: 75 MG/M2
     Route: 042
     Dates: start: 20050215, end: 20050814
  2. EPIRUBICIN [Concomitant]
     Indication: BREAST CANCER METASTATIC
     Dosage: 75 MG/M2 EVERY THREE WK
  3. FEMARA [Concomitant]
     Indication: BREAST CANCER METASTATIC
     Route: 048
  4. ZOMETA [Suspect]
     Indication: METASTASES TO BONE
     Dosage: 4 MG, TIW
     Route: 042
     Dates: start: 20050215, end: 20060415

REACTIONS (7)
  - BONE DENSITY DECREASED [None]
  - COMPUTERISED TOMOGRAM ABNORMAL [None]
  - INFECTION [None]
  - OSTEONECROSIS [None]
  - TOOTH EXTRACTION [None]
  - TOOTH INFECTION [None]
  - X-RAY ABNORMAL [None]
